FAERS Safety Report 5148109-1 (Version None)
Quarter: 2006Q4

REPORT INFORMATION
  Report Type: 
  Country: None (occurrence: None)
  Receive Date: 20061110
  Receipt Date: 20061101
  Transmission Date: 20070319
  Serious: Yes (Death, Hospitalization)
  Sender: FDA-Public Use
  Company Number: AU-GLAXOSMITHKLINE-B0444736A

PATIENT
  Age: 33 Year
  Sex: Female

DRUGS (1)
  1. PANADOL TABLETS [Suspect]
     Indication: HEADACHE
     Dosage: 16TAB PER DAY
     Route: 048
     Dates: start: 20041009

REACTIONS (6)
  - ACCIDENTAL OVERDOSE [None]
  - DRUG TOXICITY [None]
  - GASTRITIS [None]
  - HEPATIC FAILURE [None]
  - MALAISE [None]
  - PAIN [None]
